FAERS Safety Report 8499096-X (Version None)
Quarter: 2012Q2

REPORT INFORMATION
  Report Type: 
  Country: None (occurrence: None)
  Receive Date: 20120405
  Receipt Date: 20100129
  Transmission Date: 20120825
  Serious: Yes (Hospitalization, Other)
  Sender: FDA-Public Use
  Company Number: PHHY2010US05833

PATIENT
  Sex: Female

DRUGS (3)
  1. VITAMIN D [Concomitant]
  2. CALCIUM CARBONATE [Concomitant]
  3. RECLAST [Suspect]
     Dosage: INJECTION NOS
     Dates: start: 20090121

REACTIONS (9)
  - CONTUSION [None]
  - GAIT DISTURBANCE [None]
  - PAIN IN EXTREMITY [None]
  - PAIN [None]
  - PYREXIA [None]
  - BLOOD PRESSURE INCREASED [None]
  - JOINT SWELLING [None]
  - OEDEMA PERIPHERAL [None]
  - ARTHRALGIA [None]
